FAERS Safety Report 14624191 (Version 2)
Quarter: 2018Q2

REPORT INFORMATION
  Report Type: Other
  Country: US (occurrence: US)
  Receive Date: 20180312
  Receipt Date: 20180422
  Transmission Date: 20180711
  Serious: No
  Sender: FDA-Public Use
  Company Number: US-APOTEX-2017AP013643

PATIENT
  Sex: Male

DRUGS (1)
  1. APO-ALPRAZ [Suspect]
     Active Substance: ALPRAZOLAM
     Indication: PRODUCT USED FOR UNKNOWN INDICATION
     Dosage: 0.5 MG, UNK
     Route: 065

REACTIONS (3)
  - Drug effect incomplete [Unknown]
  - Product substitution issue [Unknown]
  - Underdose [Unknown]
